FAERS Safety Report 15392566 (Version 3)
Quarter: 2019Q4

REPORT INFORMATION
  Report Type: Spontaneous
  Country: CA (occurrence: CA)
  Receive Date: 20180917
  Receipt Date: 20191119
  Transmission Date: 20200122
  Serious: Yes (Other)
  Sender: FDA-Public Use
  Company Number: CA-PFIZER INC-2017021850

PATIENT
  Age: 15 Year
  Sex: Male
  Weight: 64.3 kg

DRUGS (2)
  1. RAPAMUNE [Suspect]
     Active Substance: SIROLIMUS
     Dosage: 1 MG, 2X/DAY
     Route: 048
     Dates: end: 201705
  2. RAPAMUNE [Suspect]
     Active Substance: SIROLIMUS
     Dosage: 1 MG, 2X/DAY
     Route: 048

REACTIONS (1)
  - Beta haemolytic streptococcal infection [Unknown]

NARRATIVE: CASE EVENT DATE: 201704
